FAERS Safety Report 8046911-X (Version None)
Quarter: 2012Q1

REPORT INFORMATION
  Report Type: 
  Country: None (occurrence: None)
  Receive Date: 20120116
  Receipt Date: 20120111
  Transmission Date: 20120608
  Serious: Yes (Death, Other)
  Sender: FDA-Public Use
  Company Number: US-JNJFOC-20100104018

PATIENT
  Sex: Male
  Weight: 81.8 kg

DRUGS (8)
  1. GOLIMUMAB [Suspect]
     Indication: PSORIATIC ARTHROPATHY
     Route: 058
     Dates: start: 20091020
  2. GOLIMUMAB [Suspect]
     Route: 058
     Dates: start: 20060314, end: 20090922
  3. METHOTREXATE [Concomitant]
     Route: 048
     Dates: start: 20070320, end: 20100107
  4. METHOTREXATE [Concomitant]
     Route: 048
     Dates: start: 20070320
  5. VITAMIN D [Concomitant]
     Route: 048
     Dates: start: 20080621
  6. GOLIMUMAB [Suspect]
     Route: 058
     Dates: start: 20091118, end: 20091215
  7. METHOTREXATE [Concomitant]
     Route: 048
     Dates: start: 20050824, end: 20070313
  8. FOLIC ACID [Concomitant]
     Route: 048
     Dates: start: 20050101, end: 20100107

REACTIONS (2)
  - DEATH [None]
  - COLON CANCER METASTATIC [None]
